FAERS Safety Report 21470851 (Version 1)
Quarter: 2022Q4

REPORT INFORMATION
  Report Type: Spontaneous
  Country: CA (occurrence: US)
  Receive Date: 20221018
  Receipt Date: 20221018
  Transmission Date: 20230113
  Serious: Yes (Other)
  Sender: FDA-Public Use
  Company Number: CA-BRISTOL-MYERS SQUIBB COMPANY-2022-122482

PATIENT
  Age: 59 Year
  Sex: Female

DRUGS (3)
  1. OPDIVO [Suspect]
     Active Substance: NIVOLUMAB
     Indication: Renal cell carcinoma
     Dosage: DOSE: UNAVAILABLE; FREQ: UNAVAILABLE
     Route: 065
     Dates: start: 202105, end: 202206
  2. YERVOY [Suspect]
     Active Substance: IPILIMUMAB
     Indication: Renal cell carcinoma
     Dosage: DOSE: UNAVAILABLE; FREQ: UNAVAILABLE
     Route: 065
     Dates: start: 202105, end: 202205
  3. SERTRALINE [Concomitant]
     Active Substance: SERTRALINE HYDROCHLORIDE
     Indication: Antidepressant therapy

REACTIONS (4)
  - Renal disorder [Unknown]
  - Weight increased [Unknown]
  - Hypothyroidism [Unknown]
  - Arthralgia [Unknown]

NARRATIVE: CASE EVENT DATE: 20220829
